FAERS Safety Report 6579020-7 (Version None)
Quarter: 2010Q1

REPORT INFORMATION
  Report Type: 
  Country: None (occurrence: None)
  Receive Date: 20100212
  Receipt Date: 20091015
  Transmission Date: 20100710
  Serious: Yes (Life-Threatening, Hospitalization)
  Sender: FDA-Public Use
  Company Number: CN-JNJFOC-20091005703

PATIENT
  Age: 32 Year
  Sex: Male

DRUGS (7)
  1. TRETINOIN [Suspect]
     Indication: PSORIASIS
     Route: 061
  2. VITAMIN [Suspect]
     Indication: PSORIASIS
     Route: 048
  3. TRIS-PISTIL [Suspect]
     Indication: DRUG USE FOR UNKNOWN INDICATION
     Route: 065
  4. CHINESE MEDICATION [Suspect]
     Indication: PSORIASIS
     Route: 065
  5. SORIATANE [Concomitant]
     Indication: RASH
     Dosage: 20 CONSECUTIVE DAYS
     Route: 065
  6. SORIATANE [Concomitant]
     Route: 065
  7. SORIATANE [Concomitant]
     Dosage: 30 CONSECUTIVE DAYS
     Route: 065

REACTIONS (1)
  - RETINOIC ACID SYNDROME [None]
